FAERS Safety Report 8082486-7 (Version None)
Quarter: 2012Q1

REPORT INFORMATION
  Report Type: 
  Country: None (occurrence: None)
  Receive Date: 20120127
  Receipt Date: 20110215
  Transmission Date: 20120608
  Serious: No
  Sender: FDA-Public Use
  Company Number: US-ABBOTT-11P-163-0706534-00

PATIENT
  Sex: Female
  Weight: 90.8 kg

DRUGS (6)
  1. OXYBUTYNIN CHLORIDE [Concomitant]
     Indication: BLADDER DISORDER
  2. INSULIN [Concomitant]
     Indication: DIABETES MELLITUS
  3. DILTIAZEM HCL [Concomitant]
     Indication: BLOOD PRESSURE
  4. HUMIRA [Suspect]
     Indication: CROHN'S DISEASE
     Dates: start: 20070101, end: 20110115
  5. POTASSIUM [Concomitant]
     Indication: MUSCLE SPASMS
  6. HUMIRA [Suspect]
     Indication: ARTHRITIS

REACTIONS (5)
  - FLATULENCE [None]
  - ABDOMINAL PAIN [None]
  - JOINT STIFFNESS [None]
  - ARTHRALGIA [None]
  - DIARRHOEA [None]
